FAERS Safety Report 14798969 (Version 1)
Quarter: 2018Q2

REPORT INFORMATION
  Report Type: Spontaneous
  Country: HU (occurrence: HU)
  Receive Date: 20180424
  Receipt Date: 20180424
  Transmission Date: 20180711
  Serious: Yes (Other)
  Sender: FDA-Public Use
  Company Number: HU-AMGEN-HUNSP2018051713

PATIENT
  Age: 78 Year
  Sex: Female

DRUGS (1)
  1. PROLIA [Suspect]
     Active Substance: DENOSUMAB
     Indication: PRODUCT USED FOR UNKNOWN INDICATION
     Dosage: 60 MG, Q6MO
     Route: 058

REACTIONS (5)
  - Bone pain [Unknown]
  - Dementia [Not Recovered/Not Resolved]
  - Intervertebral disc protrusion [Unknown]
  - Dysstasia [Unknown]
  - Musculoskeletal disorder [Unknown]
